FAERS Safety Report 18841215 (Version 1)
Quarter: 2021Q1

REPORT INFORMATION
  Report Type: Other
  Country: GB (occurrence: GB)
  Receive Date: 20210204
  Receipt Date: 20210204
  Transmission Date: 20210419
  Serious: No
  Sender: FDA-Public Use
  Company Number: GB-LUPIN PHARMACEUTICALS INC.-2021-00785

PATIENT
  Age: 47 Year
  Sex: Male
  Weight: 82 kg

DRUGS (7)
  1. ATORVASTATIN CALCIUM. [Suspect]
     Active Substance: ATORVASTATIN CALCIUM
     Indication: PRODUCT USED FOR UNKNOWN INDICATION
     Dosage: UNK
     Route: 065
  2. ADVEN (CANNABIDIOL) [Suspect]
     Active Substance: CANNABIDIOL\HERBALS
     Dosage: 2 MILLIGRAM, 50 ORAL CBD DROPS
     Route: 048
     Dates: start: 20191215, end: 20191226
  3. ADVEN (CANNABIDIOL) [Suspect]
     Active Substance: CANNABIDIOL\HERBALS
     Indication: PAIN
     Dosage: 2 MILLIGRAM
     Route: 048
     Dates: start: 20191119
  4. LANSOPRAZOLE. [Interacting]
     Active Substance: LANSOPRAZOLE
     Indication: PRODUCT USED FOR UNKNOWN INDICATION
     Dosage: UNK
     Route: 065
  5. CANNABIS FLOS BEDIOL (CANNABIS SATIVA FLOWER) [Suspect]
     Active Substance: CANNABIDIOL\.DELTA.8-TETRAHYDROCANNABINOL\HERBALS
     Indication: PAIN
     Dosage: 1 MILLIGRAM, CANNABIS GRANULATE 6.3THC 8% CBD STOP DATE: 11?JAN?2020
     Route: 065
  6. BEDROCAN (THC_PREDOMINANT) [Suspect]
     Active Substance: .DELTA.8-TETRAHYDROCANNABINOL\HERBALS
     Indication: PAIN
     Dosage: 1 GRAM
     Route: 065
     Dates: start: 20191216
  7. BEDROCAN (THC_PREDOMINANT) [Suspect]
     Active Substance: .DELTA.8-TETRAHYDROCANNABINOL\HERBALS
     Dosage: 1 GRAM
     Route: 065
     Dates: end: 20191226

REACTIONS (7)
  - Diarrhoea [Recovered/Resolved]
  - Musculoskeletal chest pain [Recovered/Resolved]
  - Dry mouth [Recovered/Resolved]
  - Abdominal discomfort [Recovered/Resolved]
  - Gastrooesophageal reflux disease [Recovered/Resolved]
  - Dyspepsia [Recovered/Resolved]
  - Drug interaction [Unknown]

NARRATIVE: CASE EVENT DATE: 20191125
